FAERS Safety Report 8598231-2 (Version None)
Quarter: 2012Q3

REPORT INFORMATION
  Report Type: 
  Country: None (occurrence: None)
  Receive Date: 20120816
  Receipt Date: 20120807
  Transmission Date: 20120928
  Serious: Yes (Hospitalization)
  Sender: FDA-Public Use
  Company Number: BE-ABBOTT-12P-013-0965744-00

PATIENT
  Sex: Female
  Weight: 56.1 kg

DRUGS (5)
  1. METHYLPREDNISOLONE [Concomitant]
     Indication: RHEUMATOID ARTHRITIS
     Dates: start: 20110401
  2. METHYLPREDNISOLONE [Concomitant]
     Dates: start: 20110401
  3. METOPROLOL SUCCINATE [Concomitant]
     Indication: HYPERTENSION
  4. HUMIRA [Suspect]
     Indication: RHEUMATOID ARTHRITIS
     Dates: start: 20101020
  5. AMLODIPINE [Concomitant]
     Indication: HYPERTENSION

REACTIONS (9)
  - RADICULOPATHY [None]
  - FEMORAL ARTERY OCCLUSION [None]
  - TENDON CALCIFICATION [None]
  - MOBILITY DECREASED [None]
  - ANGIOGRAM PERIPHERAL ABNORMAL [None]
  - CHOLELITHIASIS [None]
  - GENERAL PHYSICAL HEALTH DETERIORATION [None]
  - DECREASED APPETITE [None]
  - PERIPHERAL ARTERIAL OCCLUSIVE DISEASE [None]
